FAERS Safety Report 4398395-0 (Version None)
Quarter: 2004Q3

REPORT INFORMATION
  Report Type: 
  Country: None (occurrence: None)
  Receive Date: 20040715
  Receipt Date: 20040507
  Transmission Date: 20050211
  Serious: Yes (Life-Threatening, Hospitalization, Disabling, Other)
  Sender: FDA-Public Use
  Company Number: US-MERCK-0405USA00388

PATIENT
  Age: 75 Year
  Sex: Male
  Weight: 80 kg

DRUGS (11)
  1. [THERAPY UNSPECIFIED] [Concomitant]
     Route: 065
     Dates: end: 20040401
  2. ASPIRIN [Concomitant]
     Route: 065
  3. COREG [Concomitant]
     Route: 048
     Dates: start: 20030101
  4. PLAVIX [Concomitant]
     Route: 065
  5. IRON (UNSPECIFIED) [Concomitant]
     Route: 065
  6. PRINIVIL [Concomitant]
     Route: 048
  7. ZOCOR [Suspect]
     Indication: BLOOD CHOLESTEROL INCREASED
     Route: 048
     Dates: start: 20010301, end: 20040331
  8. ZOCOR [Suspect]
     Route: 048
     Dates: start: 20040401, end: 20040502
  9. ZOCOR [Suspect]
     Indication: CHEST PAIN
     Route: 048
     Dates: start: 20010301, end: 20040331
  10. ZOCOR [Suspect]
     Route: 048
     Dates: start: 20040401, end: 20040502
  11. ALDACTONE [Concomitant]
     Route: 048
     Dates: start: 20040201

REACTIONS (12)
  - ALANINE AMINOTRANSFERASE INCREASED [None]
  - ASPARTATE AMINOTRANSFERASE INCREASED [None]
  - BLOOD CREATINE PHOSPHOKINASE INCREASED [None]
  - BLOOD PHOSPHORUS INCREASED [None]
  - CORONARY ARTERY DISEASE [None]
  - HAEMODIALYSIS [None]
  - HEPATIC FAILURE [None]
  - HYPERKALAEMIA [None]
  - HYPOCALCAEMIA [None]
  - RENAL FAILURE ACUTE [None]
  - RHABDOMYOLYSIS [None]
  - WEIGHT DECREASED [None]
